FAERS Safety Report 19722468 (Version 2)
Quarter: 2021Q3

REPORT INFORMATION
  Report Type: Spontaneous
  Country: FI (occurrence: FI)
  Receive Date: 20210819
  Receipt Date: 20210916
  Transmission Date: 20211014
  Serious: Yes (Hospitalization)
  Sender: FDA-Public Use
  Company Number: FI-JNJFOC-20210823898

PATIENT
  Age: 19 Year
  Sex: Female

DRUGS (4)
  1. XEPLION [Suspect]
     Active Substance: PALIPERIDONE PALMITATE
     Indication: BIPOLAR DISORDER
     Route: 030
  2. XEPLION [Suspect]
     Active Substance: PALIPERIDONE PALMITATE
  3. XEPLION [Suspect]
     Active Substance: PALIPERIDONE PALMITATE
  4. COVID?19 VACCINE [Concomitant]

REACTIONS (7)
  - Mania [Unknown]
  - Injection site swelling [Unknown]
  - Therapeutic product effect decreased [Unknown]
  - Depression [Unknown]
  - Libido decreased [Recovering/Resolving]
  - Fatigue [Unknown]
  - Brain neoplasm [Unknown]
